FAERS Safety Report 6594440-2 (Version None)
Quarter: 2010Q1

REPORT INFORMATION
  Report Type: 
  Country: None (occurrence: None)
  Receive Date: 20100222
  Receipt Date: 20100210
  Transmission Date: 20100710
  Serious: Yes (Other)
  Sender: FDA-Public Use
  Company Number: ES-WYE-H13554610

PATIENT
  Age: 29 Year
  Sex: Female

DRUGS (2)
  1. PANTOPRAZOLE SODIUM [Suspect]
     Indication: DYSPEPSIA
     Route: 048
     Dates: start: 20090415, end: 20090513
  2. PANTOPRAZOLE SODIUM [Suspect]
     Route: 048

REACTIONS (1)
  - BREAST ENLARGEMENT [None]
